FAERS Safety Report 6370928-4 (Version None)
Quarter: 2009Q3

REPORT INFORMATION
  Report Type: 
  Country: None (occurrence: None)
  Receive Date: 20090923
  Receipt Date: 20071023
  Transmission Date: 20100115
  Serious: No
  Sender: FDA-Public Use
  Company Number: US-ASTRAZENECA-2006UW22492

PATIENT
  Age: 52 Year
  Sex: Female
  Weight: 110.8 kg

DRUGS (5)
  1. SEROQUEL [Suspect]
     Indication: DEPRESSION
     Dosage: 225 MG - 600 MG
     Route: 048
     Dates: start: 20001214
  2. SEROQUEL [Suspect]
     Route: 048
     Dates: start: 20000101
  3. GEODON [Concomitant]
     Dates: start: 20051101, end: 20051201
  4. VISTARIL [Concomitant]
     Dates: start: 20001214
  5. ZOLOFT [Concomitant]
     Dosage: 25 MG - 200 MG
     Dates: start: 20001214

REACTIONS (4)
  - BLOOD CHOLESTEROL INCREASED [None]
  - BLOOD TRIGLYCERIDES INCREASED [None]
  - HYPERGLYCAEMIA [None]
  - OBESITY [None]
